FAERS Safety Report 6476066-4 (Version None)
Quarter: 2009Q4

REPORT INFORMATION
  Report Type: 
  Country: None (occurrence: None)
  Receive Date: 20091204
  Receipt Date: 20091124
  Transmission Date: 20100525
  Serious: Yes (Hospitalization)
  Sender: FDA-Public Use
  Company Number: DE-ABBOTT-09P-062-0610763-00

PATIENT
  Sex: Female

DRUGS (8)
  1. HUMIRA [Suspect]
     Indication: RHEUMATOID ARTHRITIS
     Dates: end: 20090301
  2. LEFLUNOMIDE [Concomitant]
     Indication: DRUG USE FOR UNKNOWN INDICATION
     Dosage: 20 MG DAILY
  3. COXIBE [Concomitant]
     Indication: DRUG USE FOR UNKNOWN INDICATION
  4. SYSTEMIC GLUCOCORTICOIDS [Concomitant]
     Indication: DRUG USE FOR UNKNOWN INDICATION
     Dosage: 2.5 MG DAILY
  5. ARCOXIA [Concomitant]
     Indication: DRUG USE FOR UNKNOWN INDICATION
     Route: 048
  6. PREDNI H [Concomitant]
     Indication: DRUG USE FOR UNKNOWN INDICATION
     Route: 048
  7. PANTOZOL [Concomitant]
     Indication: DRUG USE FOR UNKNOWN INDICATION
  8. MARCUMAR [Concomitant]
     Indication: DRUG USE FOR UNKNOWN INDICATION
     Dosage: 1.5 TABLETS
     Route: 048

REACTIONS (9)
  - INFLAMMATION [None]
  - LYMPHADENITIS [None]
  - LYMPHADENOPATHY [None]
  - PLEURAL EFFUSION [None]
  - PLEURISY [None]
  - PULMONARY EMBOLISM [None]
  - RASH PUSTULAR [None]
  - THROMBOSIS [None]
  - WEGENER'S GRANULOMATOSIS [None]
